FAERS Safety Report 8550450-7 (Version None)
Quarter: 2012Q3

REPORT INFORMATION
  Report Type: 
  Country: None (occurrence: None)
  Receive Date: 20120730
  Receipt Date: 20120723
  Transmission Date: 20120928
  Serious: Yes (Other)
  Sender: FDA-Public Use
  Company Number: BR-PFIZER INC-2012178849

PATIENT
  Age: 78 Year
  Sex: Female

DRUGS (9)
  1. CALCIUM CARBONATE [Concomitant]
     Dosage: UNK
  2. CRESTOR [Concomitant]
     Dosage: UNK
  3. ADDERA D3 [Concomitant]
  4. LOVAZA [Concomitant]
     Dosage: UNK
  5. POLYCARBOPHIL CALCIUM [Concomitant]
     Dosage: UNK
  6. METFORMIN HYDROCHLORIDE [Concomitant]
     Dosage: UNK
  7. PANTOPRAZOLE [Concomitant]
     Dosage: UNK
  8. DIGEDRAT [Concomitant]
     Dosage: UNK
  9. XALATAN [Suspect]
     Dosage: UNK
     Dates: start: 20020101

REACTIONS (4)
  - CONJUNCTIVITIS ALLERGIC [None]
  - GLAUCOMA [None]
  - CATARACT [None]
  - INTERVERTEBRAL DISC PROTRUSION [None]
